FAERS Safety Report 4785440-3 (Version None)
Quarter: 2005Q3

REPORT INFORMATION
  Report Type: 
  Country: None (occurrence: None)
  Receive Date: 20050926
  Receipt Date: 20050916
  Transmission Date: 20060218
  Serious: No
  Sender: FDA-Public Use
  Company Number: CART-10175

PATIENT
  Age: 19 Year
  Sex: Female

DRUGS (1)
  1. CARTICEL [Suspect]
     Indication: OSTEOCHONDROSIS
     Dosage: 1 NA ONCE IS
     Dates: start: 19990216, end: 19990216

REACTIONS (15)
  - ARTHROFIBROSIS [None]
  - BONE DISORDER [None]
  - CARTILAGE INJURY [None]
  - CHONDROPATHY [None]
  - DRUG INEFFECTIVE [None]
  - FAILURE OF IMPLANT [None]
  - GRAFT COMPLICATION [None]
  - GRAFT DELAMINATION [None]
  - HAEMORRHAGE [None]
  - JOINT DISLOCATION [None]
  - LOOSE BODY IN JOINT [None]
  - PAIN [None]
  - PATELLOFEMORAL PAIN SYNDROME [None]
  - POSTOPERATIVE ADHESION [None]
  - SCAR [None]
